FAERS Safety Report 13696842 (Version 18)
Quarter: 2019Q1

REPORT INFORMATION
  Report Type: Report from Study
  Country: CO (occurrence: CO)
  Receive Date: 20170628
  Receipt Date: 20190321
  Transmission Date: 20190417
  Serious: Yes (Hospitalization, Other)
  Sender: FDA-Public Use
  Company Number: CO-INCYTE CORPORATION-2017IN005035

PATIENT

DRUGS (16)
  1. JAKAVI [Suspect]
     Active Substance: RUXOLITINIB
     Dosage: 15 MG, BID
     Route: 048
     Dates: start: 20180227
  2. JAKAVI [Suspect]
     Active Substance: RUXOLITINIB
     Dosage: 30 MG, QD
     Route: 048
     Dates: start: 20180327
  3. ESCITALOPRAM [Suspect]
     Active Substance: ESCITALOPRAM OXALATE
     Indication: ANXIETY
     Dosage: 10 MG, QD
     Route: 065
  4. HYDROXYUREA. [Suspect]
     Active Substance: HYDROXYUREA
     Indication: PRODUCT USED FOR UNKNOWN INDICATION
     Dosage: UNK
     Route: 065
  5. ACETAMINOPHEN. [Concomitant]
     Active Substance: ACETAMINOPHEN
     Indication: BONE PAIN
     Dosage: UNK
     Route: 065
  6. ESCITALOPRAM [Suspect]
     Active Substance: ESCITALOPRAM OXALATE
     Indication: DEPRESSION
  7. JAKAVI [Suspect]
     Active Substance: RUXOLITINIB
     Dosage: 20 MG, QD
     Route: 065
  8. JAKAVI [Suspect]
     Active Substance: RUXOLITINIB
     Dosage: UNK
     Route: 048
  9. JAKAVI [Suspect]
     Active Substance: RUXOLITINIB
     Dosage: 2 DF, QD (5 MG)
     Route: 048
  10. ASPIRIN. [Concomitant]
     Active Substance: ASPIRIN
     Indication: PRODUCT USED FOR UNKNOWN INDICATION
     Dosage: UNK
     Route: 065
  11. JAKAVI [Suspect]
     Active Substance: RUXOLITINIB
     Dosage: 20 MG, Q12H
     Route: 048
  12. LORATADINE. [Suspect]
     Active Substance: LORATADINE
     Indication: PRODUCT USED FOR UNKNOWN INDICATION
     Dosage: UNK
     Route: 065
  13. JAKAVI [Suspect]
     Active Substance: RUXOLITINIB
     Indication: POLYCYTHAEMIA VERA
     Dosage: 5 MG, BID
     Route: 048
     Dates: start: 20140314
  14. JAKAVI [Suspect]
     Active Substance: RUXOLITINIB
     Dosage: 40 MG, QD
     Route: 048
  15. ESOMEPRAZOLE. [Suspect]
     Active Substance: ESOMEPRAZOLE MAGNESIUM
     Indication: PRODUCT USED FOR UNKNOWN INDICATION
     Dosage: UNK UNK, QD
     Route: 065
  16. DOLEX [Concomitant]
     Active Substance: IBUPROFEN
     Indication: PRODUCT USED FOR UNKNOWN INDICATION
     Dosage: UNK
     Route: 065

REACTIONS (53)
  - Abnormal behaviour [Unknown]
  - Vision blurred [Unknown]
  - Malaise [Unknown]
  - Asthenia [Recovered/Resolved]
  - Platelet count increased [Unknown]
  - Polycythaemia vera [Unknown]
  - Anger [Unknown]
  - Headache [Unknown]
  - Agitation [Unknown]
  - Amnesia [Unknown]
  - Sneezing [Unknown]
  - Vomiting [Unknown]
  - Hypersensitivity [Unknown]
  - Diarrhoea [Unknown]
  - Fall [Unknown]
  - Heart rate increased [Unknown]
  - Skin disorder [Unknown]
  - Pain [Unknown]
  - Inappropriate schedule of product administration [Unknown]
  - Boredom [Unknown]
  - Muscle spasms [Unknown]
  - Fungal infection [Unknown]
  - Insomnia [Unknown]
  - Dyspnoea [Unknown]
  - Weight decreased [Unknown]
  - Anal haemorrhage [Recovered/Resolved]
  - Anxiety [Unknown]
  - Chills [Unknown]
  - Mouth haemorrhage [Recovered/Resolved]
  - Pyrexia [Unknown]
  - Cystitis [Unknown]
  - Dizziness [Unknown]
  - Bone pain [Not Recovered/Not Resolved]
  - Viral infection [Unknown]
  - Abdominal pain [Unknown]
  - Psychiatric symptom [Unknown]
  - Gastric ulcer [Unknown]
  - Sleep disorder [Unknown]
  - Decreased appetite [Unknown]
  - Rectal haemorrhage [Unknown]
  - Renal colic [Unknown]
  - Nausea [Unknown]
  - Skin haemorrhage [Recovered/Resolved]
  - Depression [Unknown]
  - Feeling abnormal [Unknown]
  - Chest discomfort [Unknown]
  - Pain in extremity [Unknown]
  - Spleen disorder [Unknown]
  - Pruritus [Unknown]
  - Arthralgia [Unknown]
  - Tuberculosis [Recovered/Resolved]
  - Haematemesis [Unknown]
  - Cough [Unknown]

NARRATIVE: CASE EVENT DATE: 20160914
